FAERS Safety Report 10084864 (Version 3)
Quarter: 2014Q2

REPORT INFORMATION
  Report Type: Spontaneous
  Country: US (occurrence: US)
  Receive Date: 20140417
  Receipt Date: 20140506
  Transmission Date: 20141212
  Serious: Yes (Hospitalization, Disabling, Other)
  Sender: FDA-Public Use
  Company Number: US-009507513-1007USA03438

PATIENT
  Sex: Female
  Weight: 49.43 kg

DRUGS (7)
  1. FOSAMAX [Suspect]
     Indication: OSTEOPOROSIS
     Dosage: 70 MG, UNK
     Route: 048
     Dates: start: 20011001, end: 20090705
  2. FORTEO [Concomitant]
     Indication: OSTEOPOROSIS
     Dosage: 20 ?G, QD
     Dates: start: 20100508, end: 20100528
  3. SYNTHROID [Concomitant]
     Dosage: 0.075 MG, UNK
  4. VITAMIN D (UNSPECIFIED) [Concomitant]
  5. CHOLESTEROL [Concomitant]
  6. ALENDRONATE SODIUM [Suspect]
     Indication: OSTEOPOROSIS
     Dosage: 70 MG, UNK
     Route: 048
     Dates: start: 20090705, end: 20100310
  7. NASONEX [Concomitant]

REACTIONS (28)
  - Disability [Unknown]
  - Surgery [Unknown]
  - Spinal operation [Unknown]
  - Osteonecrosis of jaw [Unknown]
  - Pain in extremity [Recovered/Resolved]
  - Activities of daily living impaired [Recovered/Resolved]
  - Injection site erythema [Unknown]
  - Oral infection [Unknown]
  - Scratch [Unknown]
  - Dental prosthesis user [Unknown]
  - Dental caries [Unknown]
  - Impaired healing [Unknown]
  - Impaired healing [Unknown]
  - Cataract operation [Unknown]
  - Cataract operation [Unknown]
  - Palpitations [Unknown]
  - Weight increased [Unknown]
  - Fall [Unknown]
  - Adhesion [Unknown]
  - Nasal septum deviation [Unknown]
  - Nasal oedema [Unknown]
  - Sinusitis [Unknown]
  - Osteopenia [Unknown]
  - Confusion postoperative [Unknown]
  - Mitral valve prolapse [Unknown]
  - Vitamin D decreased [Unknown]
  - Gastrooesophageal reflux disease [Unknown]
  - Back pain [Recovered/Resolved]
